FAERS Safety Report 7358330-X (Version None)
Quarter: 2011Q1

REPORT INFORMATION
  Report Type: 
  Country: None (occurrence: None)
  Receive Date: 20110317
  Receipt Date: 20110310
  Transmission Date: 20110831
  Serious: Yes (Hospitalization)
  Sender: FDA-Public Use
  Company Number: US-B.I. PHARMACEUTICALS,INC./RIDGEFIELD-2011-BP-04747BP

PATIENT
  Age: 70 Year
  Sex: Male

DRUGS (7)
  1. ASPIRIN [Suspect]
  2. AVALIDE [Concomitant]
  3. PRADAXA [Suspect]
     Indication: ATRIAL FIBRILLATION
     Dosage: 300 MG
     Dates: start: 20101230
  4. IMDUR [Concomitant]
     Dosage: 60 MG
  5. AMLODIPINE [Concomitant]
     Dosage: 5 MG
  6. ATENOLOL [Concomitant]
     Dosage: 50 MG
  7. SIMVASTATIN [Concomitant]
     Dosage: 20 MG

REACTIONS (7)
  - ASTHENIA [None]
  - COAGULOPATHY [None]
  - HAEMATOCHEZIA [None]
  - LESION EXCISION [None]
  - GASTROINTESTINAL HAEMORRHAGE [None]
  - DIZZINESS [None]
  - ANAEMIA [None]
